FAERS Safety Report 7391307-7 (Version None)
Quarter: 2011Q2

REPORT INFORMATION
  Report Type: 
  Country: None (occurrence: None)
  Receive Date: 20110404
  Receipt Date: 20110325
  Transmission Date: 20111010
  Serious: Yes (Other)
  Sender: FDA-Public Use
  Company Number: JP-JNJFOC-20110302458

PATIENT
  Sex: Female

DRUGS (9)
  1. CARBAMAZEPINE [Concomitant]
     Indication: EPILEPSY
     Route: 048
  2. INVEGA [Suspect]
     Indication: EPILEPTIC PSYCHOSIS
     Route: 048
  3. RISPERIDONE [Suspect]
     Indication: PRODUCT USED FOR UNKNOWN INDICATION
     Route: 065
  4. CYSVON [Concomitant]
     Indication: INSOMNIA
     Route: 048
  5. MAGMITT [Concomitant]
     Indication: CONSTIPATION
     Route: 048
  6. MICARDIS [Concomitant]
     Indication: HYPERTENSION
     Route: 048
  7. INVEGA [Suspect]
     Route: 048
  8. VALPROATE SODIUM [Concomitant]
     Indication: EPILEPSY
     Route: 048
  9. LANDSEN [Concomitant]
     Indication: ANXIETY
     Route: 048

REACTIONS (1)
  - RHABDOMYOLYSIS [None]
